FAERS Safety Report 15468656 (Version 1)
Quarter: 2018Q4

REPORT INFORMATION
  Report Type: Spontaneous
  Country: AU (occurrence: AU)
  Receive Date: 20181005
  Receipt Date: 20181005
  Transmission Date: 20190204
  Serious: Yes (Hospitalization, Other)
  Sender: FDA-Public Use
  Company Number: AU-APOTEX-2018AP021671

PATIENT
  Age: 53 Year
  Sex: Female

DRUGS (8)
  1. HYDROXYCHLOROQUINE [Suspect]
     Active Substance: HYDROXYCHLOROQUINE
     Indication: SUBACUTE CUTANEOUS LUPUS ERYTHEMATOSUS
     Dosage: 200 MG, BID
     Route: 065
  2. PREDNISOLONE. [Concomitant]
     Active Substance: PREDNISOLONE
     Indication: AUTOIMMUNE DISORDER
     Dosage: 12.5 MG, DAILY
     Route: 065
  3. PREDNISOLONE. [Concomitant]
     Active Substance: PREDNISOLONE
     Indication: RASH MACULAR
  4. PREDNISOLONE. [Concomitant]
     Active Substance: PREDNISOLONE
     Indication: TELANGIECTASIA
  5. RAMIPRIL. [Suspect]
     Active Substance: RAMIPRIL
     Indication: HYPERTENSION
     Dosage: UNK
     Route: 065
  6. HYDROXYCHLOROQUINE [Suspect]
     Active Substance: HYDROXYCHLOROQUINE
     Indication: TOXIC EPIDERMAL NECROLYSIS
  7. PREDNISOLONE. [Concomitant]
     Active Substance: PREDNISOLONE
     Indication: ARTHRALGIA
     Dosage: 50 MG, UNK,DAILY
     Route: 065
  8. PREDNISOLONE. [Concomitant]
     Active Substance: PREDNISOLONE
     Indication: SUBACUTE CUTANEOUS LUPUS ERYTHEMATOSUS

REACTIONS (3)
  - Subacute cutaneous lupus erythematosus [Recovering/Resolving]
  - Gastrointestinal disorder [Unknown]
  - Toxic epidermal necrolysis [Recovering/Resolving]
